FAERS Safety Report 7399052-9 (Version None)
Quarter: 2011Q1

REPORT INFORMATION
  Report Type: 
  Country: None (occurrence: None)
  Receive Date: 20110301
  Receipt Date: 20100611
  Transmission Date: 20110831
  Serious: Yes (Other)
  Sender: FDA-Public Use
  Company Number: US-JNJFOC-20100510678

PATIENT
  Age: 8 Year
  Sex: Female
  Weight: 36.2878 kg

DRUGS (6)
  1. CHILDREN'S TYLENOL SUSPENSION [Suspect]
     Indication: PYREXIA
     Dosage: 320 MG, 1 IN 1 DAY, ORAL
     Route: 048
     Dates: start: 20100414, end: 20100525
  2. CHILDREN'S TYLENOL SUSPENSION [Suspect]
     Indication: HEADACHE
     Dosage: 320 MG, 1 IN 1 DAY, ORAL
     Route: 048
     Dates: start: 20100414, end: 20100525
  3. CHILDREN'S TYLENOL PLUS MULTI-SYMPTOM COLD [Suspect]
     Indication: NASOPHARYNGITIS
     Dosage: 10 ML, 1 IN 1 DAY, ORAL
     Route: 048
     Dates: start: 20100414, end: 20100525
  4. BENADRYL [Suspect]
     Indication: MULTIPLE ALLERGIES
     Dosage: 1 OR 2 TSP DAILY AT NIGHT
  5. BENADRYL [Suspect]
     Indication: SLEEP DISORDER THERAPY
     Dosage: 1 OR 2 TSP DAILY AT NIGHT
  6. CHILDREN'S MOTRIN [Suspect]
     Indication: PYREXIA
     Dosage: 250 MG, 3 IN 1 DAY, ORAL
     Route: 048
     Dates: start: 20100414, end: 20100525

REACTIONS (10)
  - FATIGUE [None]
  - ABDOMINAL PAIN UPPER [None]
  - VOMITING [None]
  - ASTHMA [None]
  - PRODUCT QUALITY ISSUE [None]
  - DIARRHOEA [None]
  - NASOPHARYNGITIS [None]
  - HEADACHE [None]
  - DIZZINESS [None]
  - PYREXIA [None]
